FAERS Safety Report 18549457 (Version 1)
Quarter: 2020Q4

REPORT INFORMATION
  Report Type: Spontaneous
  Country: FR (occurrence: FR)
  Receive Date: 20201126
  Receipt Date: 20201126
  Transmission Date: 20210114
  Serious: Yes (Hospitalization)
  Sender: FDA-Public Use
  Company Number: FR-ROCHE-2717577

PATIENT
  Age: 36 Year
  Sex: Female

DRUGS (4)
  1. SERESTA [Suspect]
     Active Substance: OXAZEPAM
     Indication: DRUG USE DISORDER
     Route: 065
  2. VALIUM [Suspect]
     Active Substance: DIAZEPAM
     Indication: DRUG USE DISORDER
     Route: 048
  3. SUBUTEX [Concomitant]
     Active Substance: BUPRENORPHINE HYDROCHLORIDE
  4. STILNOX [Suspect]
     Active Substance: ZOLPIDEM TARTRATE
     Indication: DRUG USE DISORDER
     Route: 048

REACTIONS (1)
  - Drug use disorder [Not Recovered/Not Resolved]

NARRATIVE: CASE EVENT DATE: 2010
